FAERS Safety Report 10678308 (Version 1)
Quarter: 2014Q4

REPORT INFORMATION
  Report Type: Spontaneous
  Country: US (occurrence: US)
  Receive Date: 20141229
  Receipt Date: 20141229
  Transmission Date: 20150529
  Serious: No
  Sender: FDA-Public Use
  Company Number: US-ELI_LILLY_AND_COMPANY-US201412008914

PATIENT
  Age: 75 Year
  Sex: Female

DRUGS (12)
  1. CALCIUM + VITAMIN D [Concomitant]
     Active Substance: CALCIUM\VITAMIN D
  2. ADCIRCA [Suspect]
     Active Substance: TADALAFIL
     Indication: PULMONARY HYPERTENSION
     Dosage: UNK
     Route: 065
     Dates: start: 20140510, end: 20141013
  3. LOSARTAN [Concomitant]
     Active Substance: LOSARTAN
  4. UBIDECARENONE [Concomitant]
     Active Substance: UBIDECARENONE
  5. VITAMIN B12 [Concomitant]
     Active Substance: CYANOCOBALAMIN
  6. CARVEDILOL. [Concomitant]
     Active Substance: CARVEDILOL
  7. LYRICA [Concomitant]
     Active Substance: PREGABALIN
  8. PANTOPRAZOLE SODIUM [Concomitant]
     Active Substance: PANTOPRAZOLE SODIUM
  9. PIROXICAM. [Concomitant]
     Active Substance: PIROXICAM
  10. LETAIRIS [Suspect]
     Active Substance: AMBRISENTAN
     Indication: PULMONARY HYPERTENSION
     Dosage: 10 MG, QD
     Dates: start: 20121115, end: 20141013
  11. CHOLINE BITARTRATE [Concomitant]
     Active Substance: CHOLINE BITARTRATE
  12. GENTLE RAIN [Concomitant]

REACTIONS (3)
  - Visual impairment [Unknown]
  - Anaemia [Unknown]
  - Drug ineffective [Unknown]
